FAERS Safety Report 12783306 (Version 3)
Quarter: 2016Q4

REPORT INFORMATION
  Report Type: Spontaneous
  Country: US (occurrence: US)
  Receive Date: 20160927
  Receipt Date: 20161208
  Transmission Date: 20170207
  Serious: No
  Sender: FDA-Public Use
  Company Number: US-ASTRAZENECA-2016SF02401

PATIENT
  Age: 75 Year
  Sex: Female

DRUGS (11)
  1. BENAZAPRIL [Concomitant]
     Indication: BLOOD PRESSURE ABNORMAL
     Route: 048
     Dates: start: 2008
  2. CLONIDINE. [Concomitant]
     Active Substance: CLONIDINE
     Indication: BLOOD PRESSURE ABNORMAL
     Route: 048
     Dates: start: 2008
  3. ANASTROZOLE. [Suspect]
     Active Substance: ANASTROZOLE
     Indication: BREAST CANCER
     Route: 048
  4. TAMOXIFEN [Suspect]
     Active Substance: TAMOXIFEN
     Indication: BREAST CANCER
     Route: 048
     Dates: start: 2013
  5. ASPIRIN. [Concomitant]
     Active Substance: ASPIRIN
     Indication: ANTICOAGULANT THERAPY
     Route: 048
     Dates: start: 2016
  6. COREG [Concomitant]
     Active Substance: CARVEDILOL
     Indication: CARDIAC DISORDER
     Route: 048
     Dates: start: 2016
  7. BENAZAPRIL [Concomitant]
     Indication: CARDIAC DISORDER
     Route: 048
     Dates: start: 2008
  8. BRILINTA [Suspect]
     Active Substance: TICAGRELOR
     Indication: PROPHYLAXIS
     Route: 048
  9. ARGININE [Concomitant]
     Active Substance: ARGININE
     Indication: BREAST CANCER
     Dosage: EVERY 12 HOURS
     Route: 048
  10. BRILINTA [Suspect]
     Active Substance: TICAGRELOR
     Indication: ACUTE CORONARY SYNDROME
     Route: 048
  11. CLONIDINE. [Concomitant]
     Active Substance: CLONIDINE
     Indication: CARDIAC DISORDER
     Route: 048
     Dates: start: 2008

REACTIONS (16)
  - Fall [Unknown]
  - Carpal tunnel syndrome [Unknown]
  - Swelling [Unknown]
  - Contusion [Unknown]
  - Drug dose omission [Unknown]
  - Mental disorder [Unknown]
  - Gait disturbance [Unknown]
  - Trigger finger [Unknown]
  - Pain [Unknown]
  - Hypoaesthesia [Unknown]
  - Haemorrhage [Unknown]
  - Animal bite [Unknown]
  - Thrombosis [Unknown]
  - Polyuria [Unknown]
  - Animal scratch [Unknown]
  - Fatigue [Unknown]

NARRATIVE: CASE EVENT DATE: 2016
